FAERS Safety Report 15074674 (Version 1)
Quarter: 2018Q2

REPORT INFORMATION
  Report Type: Spontaneous
  Country: US (occurrence: US)
  Receive Date: 20180627
  Receipt Date: 20180627
  Transmission Date: 20180711
  Serious: Yes (Hospitalization)
  Sender: FDA-Public Use
  Company Number: US-SAOL THERAPEUTICS-2017SAO01131

PATIENT
  Age: 55 Year
  Sex: Female

DRUGS (4)
  1. BUPIVACAINE. [Suspect]
     Active Substance: BUPIVACAINE
     Dosage: 3.0652 MG, \DAY
     Route: 037
     Dates: start: 20170628
  2. BACLOFEN. [Suspect]
     Active Substance: BACLOFEN
     Dosage: 875.8 ?G, \DAY
     Route: 037
     Dates: start: 20170628
  3. BUPIVACAINE. [Suspect]
     Active Substance: BUPIVACAINE
     Dosage: 3.065 MG, UNK
     Route: 037
  4. BACLOFEN. [Suspect]
     Active Substance: BACLOFEN
     Dosage: 875 ?G, \DAY
     Route: 037

REACTIONS (4)
  - Underdose [Not Recovered/Not Resolved]
  - Device battery issue [Not Recovered/Not Resolved]
  - Device failure [Unknown]
  - Muscle spasticity [Not Recovered/Not Resolved]

NARRATIVE: CASE EVENT DATE: 20170606
